FAERS Safety Report 8548493-2 (Version None)
Quarter: 2012Q3

REPORT INFORMATION
  Report Type: 
  Country: None (occurrence: None)
  Receive Date: 20120730
  Receipt Date: 20120717
  Transmission Date: 20120928
  Serious: Yes (Other)
  Sender: FDA-Public Use
  Company Number: US-JNJFOC-20120713288

PATIENT
  Sex: Male
  Weight: 83.46 kg

DRUGS (3)
  1. PREDNISONE [Suspect]
     Indication: CROHN'S DISEASE
     Route: 065
  2. TYLENOL [Suspect]
     Indication: PAIN
     Route: 048
  3. TYLENOL [Suspect]
     Indication: CROHN'S DISEASE
     Route: 048

REACTIONS (1)
  - ASTHMA [None]
